FAERS Safety Report 23187650 (Version 3)
Quarter: 2025Q2

REPORT INFORMATION
  Report Type: Spontaneous
  Country: GB (occurrence: GB)
  Receive Date: 20231115
  Receipt Date: 20250403
  Transmission Date: 20250717
  Serious: Yes (Other)
  Sender: NOVARTIS
  Company Number: GB-002147023-NVSC2023GB240354

PATIENT
  Sex: Female

DRUGS (1)
  1. MAYZENT [Suspect]
     Active Substance: SIPONIMOD
     Indication: Multiple sclerosis
     Route: 065

REACTIONS (5)
  - Mental disorder [Unknown]
  - Personality change [Unknown]
  - Thinking abnormal [Unknown]
  - Nervous system disorder [Unknown]
  - General physical health deterioration [Unknown]
